FAERS Safety Report 5104397-9 (Version None)
Quarter: 2006Q3

REPORT INFORMATION
  Report Type: 
  Country: None (occurrence: None)
  Receive Date: 20060908
  Receipt Date: 20060908
  Transmission Date: 20061208
  Serious: Yes (Hospitalization)
  Sender: FDA-Public Use
  Company Number: None

PATIENT
  Sex: Female
  Weight: 68.0396 kg

DRUGS (1)
  1. MACROBID [Suspect]
     Indication: URINARY TRACT INFECTION
     Dosage: PO
     Route: 048
     Dates: start: 20060216, end: 20060219

REACTIONS (5)
  - AGRANULOCYTOSIS [None]
  - APLASTIC ANAEMIA [None]
  - DRUG TOXICITY [None]
  - HEPATIC NECROSIS [None]
  - INJURY [None]
